FAERS Safety Report 6980343-8 (Version None)
Quarter: 2010Q3

REPORT INFORMATION
  Report Type: 
  Country: None (occurrence: None)
  Receive Date: 20100909
  Receipt Date: 20100825
  Transmission Date: 20110219
  Serious: Yes (Other)
  Sender: FDA-Public Use
  Company Number: 2009AP003552

PATIENT
  Sex: Female

DRUGS (5)
  1. VALPROIC ACID [Suspect]
     Indication: AFFECTIVE DISORDER
     Dosage: PO, HS
     Route: 048
     Dates: start: 20090729, end: 20090819
  2. HYDROCHLOROTHIAZIDE [Concomitant]
  3. ATORVASTATIN CALCIUM [Concomitant]
  4. RAMIPRIL [Concomitant]
  5. CALCIUM CARBONATE [Concomitant]

REACTIONS (3)
  - DELUSION [None]
  - DRUG LEVEL DECREASED [None]
  - MALABSORPTION [None]
